FAERS Safety Report 25144898 (Version 1)
Quarter: 2025Q2

REPORT INFORMATION
  Report Type: Spontaneous
  Country: US (occurrence: None)
  Receive Date: 20250401
  Receipt Date: 20250401
  Transmission Date: 20250716
  Serious: Yes (Hospitalization)
  Sender: FDA-CTU
  Company Number: None

PATIENT
  Age: 66 Year
  Sex: Female
  Weight: 131 kg

DRUGS (1)
  1. CARBOPLATIN [Suspect]
     Active Substance: CARBOPLATIN
     Dates: end: 20221230

REACTIONS (6)
  - Toxicity to various agents [None]
  - Haematotoxicity [None]
  - QRS axis abnormal [None]
  - Myocardial infarction [None]
  - Coronary artery disease [None]
  - Palpitations [None]

NARRATIVE: CASE EVENT DATE: 20250115
